FAERS Safety Report 5606594-2 (Version None)
Quarter: 2008Q1

REPORT INFORMATION
  Report Type: 
  Country: None (occurrence: None)
  Receive Date: 20080129
  Receipt Date: 20080123
  Transmission Date: 20080703
  Serious: Yes (Other)
  Sender: FDA-Public Use
  Company Number: US-ASTRAZENECA-2007UW28255

PATIENT
  Age: 38 Year
  Sex: Female

DRUGS (4)
  1. ARIMIDEX [Suspect]
     Indication: BREAST CANCER
     Route: 048
  2. HYDROCODONE BITARTRATE [Concomitant]
  3. MOBIC [Concomitant]
  4. TRAMADOL HCL [Concomitant]

REACTIONS (6)
  - ARTHRALGIA [None]
  - BRUXISM [None]
  - DEPRESSION [None]
  - INSOMNIA [None]
  - JAW DISORDER [None]
  - SUICIDAL IDEATION [None]
